FAERS Safety Report 15141936 (Version 1)
Quarter: 2018Q3

REPORT INFORMATION
  Report Type: Spontaneous
  Country: US (occurrence: US)
  Receive Date: 20180713
  Receipt Date: 20180713
  Transmission Date: 20181010
  Serious: No
  Sender: FDA-Public Use
  Company Number: US-ASTELLAS-2017US032598

PATIENT
  Age: 88 Year
  Sex: Female

DRUGS (1)
  1. MYRBETRIQ [Suspect]
     Active Substance: MIRABEGRON
     Indication: HYPERTONIC BLADDER
     Route: 065
     Dates: start: 20170809

REACTIONS (4)
  - Pain in extremity [Unknown]
  - Bladder pain [Unknown]
  - Bladder spasm [Unknown]
  - Drug ineffective [Recovering/Resolving]

NARRATIVE: CASE EVENT DATE: 201708
